FAERS Safety Report 4279703-8 (Version None)
Quarter: 2004Q1

REPORT INFORMATION
  Report Type: 
  Country: None (occurrence: None)
  Receive Date: 20040123
  Receipt Date: 20040115
  Transmission Date: 20041129
  Serious: Yes (Hospitalization)
  Sender: FDA-Public Use
  Company Number: HQWYE920729DEC03

PATIENT
  Age: 58 Year
  Sex: Male

DRUGS (5)
  1. EFFEXOR XR [Suspect]
     Indication: ANXIETY
     Dosage: ^LOW DOSES^ (UNSPECIFIED), ORAL
     Route: 048
     Dates: start: 20030601, end: 20030701
  2. EFFEXOR XR [Suspect]
     Indication: PANIC ATTACK
     Dosage: ^LOW DOSES^ (UNSPECIFIED), ORAL
     Route: 048
     Dates: start: 20030601, end: 20030701
  3. EFFEXOR XR [Suspect]
     Dosage: 300 MG 1 X PER 1 DAY, ORAL
     Route: 048
     Dates: start: 20030701, end: 20031205
  4. EFFEXOR XR [Suspect]
     Dosage: 225 NG 1X PER 1 DAY, ORAL
     Route: 048
     Dates: start: 20031206, end: 20031219
  5. EFFEXOR XR [Suspect]
     Dosage: 150 MG 1X PER 1 DAY, ORAL
     Route: 048
     Dates: start: 20031220, end: 20040102

REACTIONS (10)
  - AGITATION [None]
  - ANXIETY [None]
  - CONDITION AGGRAVATED [None]
  - FREQUENT BOWEL MOVEMENTS [None]
  - HYPERHIDROSIS [None]
  - HYPERTENSION [None]
  - INFLUENZA LIKE ILLNESS [None]
  - INSOMNIA [None]
  - POLLAKIURIA [None]
  - WEIGHT DECREASED [None]
